FAERS Safety Report 18420596 (Version 1)
Quarter: 2020Q4

REPORT INFORMATION
  Report Type: Spontaneous
  Country: HU (occurrence: HU)
  Receive Date: 20201023
  Receipt Date: 20201023
  Transmission Date: 20210114
  Serious: Yes (Hospitalization)
  Sender: FDA-Public Use
  Company Number: HU-NALPROPION PHARMACEUTICALS INC.-2020-011382

PATIENT

DRUGS (3)
  1. MYSIMBA (NALTREXONE HCL/BUPROPION HCL) PROLONGED-RELEASE TABLETS [Suspect]
     Active Substance: BUPROPION HYDROCHLORIDE\NALTREXONE HYDROCHLORIDE
     Indication: PRODUCT USED FOR UNKNOWN INDICATION
     Dosage: 8MG/90MG, ONE TABLET
     Route: 048
     Dates: start: 202008
  2. MYSIMBA (NALTREXONE HCL/BUPROPION HCL) PROLONGED-RELEASE TABLETS [Suspect]
     Active Substance: BUPROPION HYDROCHLORIDE\NALTREXONE HYDROCHLORIDE
     Dosage: 8MG/90MG, TWO TABLETS
     Route: 048
  3. MYSIMBA (NALTREXONE HCL/BUPROPION HCL) PROLONGED-RELEASE TABLETS [Suspect]
     Active Substance: BUPROPION HYDROCHLORIDE\NALTREXONE HYDROCHLORIDE
     Dosage: 8MG/90MG, THREE TABLETS
     Route: 048
     Dates: end: 202009

REACTIONS (4)
  - Gastric pH decreased [Recovered/Resolved]
  - Gastrooesophageal reflux disease [Recovered/Resolved]
  - Volvulus [Recovered/Resolved]
  - Constipation [Recovered/Resolved]
